FAERS Safety Report 22254923 (Version 2)
Quarter: 2023Q4

REPORT INFORMATION
  Report Type: Spontaneous
  Country: FR (occurrence: FR)
  Receive Date: 20230426
  Receipt Date: 20231013
  Transmission Date: 20240110
  Serious: Yes (Other)
  Sender: FDA-Public Use
  Company Number: FR-AFSSAPS-AN2023000295

PATIENT
  Age: 64 Year
  Sex: Male
  Weight: 75 kg

DRUGS (3)
  1. ALFUZOSIN [Suspect]
     Active Substance: ALFUZOSIN
     Indication: Benign prostatic hyperplasia
     Dosage: 1 DOSAGE FORM, DAILY
     Route: 048
  2. OXYMETAZOLINE HYDROCHLORIDE [Suspect]
     Active Substance: OXYMETAZOLINE HYDROCHLORIDE
     Indication: Nasal congestion
     Dosage: 3 DOSAGE FORM, DAILY
     Route: 045
     Dates: start: 2020, end: 20230214
  3. NAPHAZOLINE NITRATE\PREDNISOLONE [Suspect]
     Active Substance: NAPHAZOLINE NITRATE\PREDNISOLONE
     Indication: Nasal congestion
     Dosage: 3 DOSAGE FORM, DAILY
     Route: 045
     Dates: start: 2020, end: 20230214

REACTIONS (4)
  - Metamorphopsia [Recovered/Resolved]
  - Intentional product misuse [Recovered/Resolved]
  - Aphasia [Recovered/Resolved]
  - Transient ischaemic attack [Recovered/Resolved]

NARRATIVE: CASE EVENT DATE: 20200101
